FAERS Safety Report 7120838-X (Version None)
Quarter: 2010Q4

REPORT INFORMATION
  Report Type: 
  Country: None (occurrence: None)
  Receive Date: 20101124
  Receipt Date: 20091222
  Transmission Date: 20110411
  Serious: No
  Sender: FDA-Public Use
  Company Number: US-PFIZER INC-2009306686

PATIENT
  Sex: Male
  Weight: 87 kg

DRUGS (2)
  1. TIKOSYN [Suspect]
     Indication: ARRHYTHMIA
     Dosage: UNK
  2. PROMETHAZINE [Suspect]
     Indication: NAUSEA
     Route: 042
     Dates: start: 20091204

REACTIONS (2)
  - ANGIOGRAM [None]
  - NAUSEA [None]
